FAERS Safety Report 12742916 (Version 1)
Quarter: 2016Q3

REPORT INFORMATION
  Report Type: Spontaneous
  Country: US (occurrence: US)
  Receive Date: 20160914
  Receipt Date: 20160914
  Transmission Date: 20161109
  Serious: Yes (Disabling)
  Sender: FDA-Public Use
  Company Number: None

PATIENT
  Age: 24 Year
  Sex: Male
  Weight: 60.75 kg

DRUGS (3)
  1. SUBOXONE [Concomitant]
     Active Substance: BUPRENORPHINE HYDROCHLORIDE\NALOXONE HYDROCHLORIDE
  2. CHANTIX [Suspect]
     Active Substance: VARENICLINE TARTRATE
     Indication: EX-TOBACCO USER
     Route: 048
  3. ADDERALL [Concomitant]
     Active Substance: AMPHETAMINE ASPARTATE\AMPHETAMINE SULFATE\DEXTROAMPHETAMINE SACCHARATE\DEXTROAMPHETAMINE SULFATE

REACTIONS (17)
  - Abnormal behaviour [None]
  - Drug ineffective [None]
  - Impaired driving ability [None]
  - Gait disturbance [None]
  - Urinary retention [None]
  - Nausea [None]
  - Constipation [None]
  - Anger [None]
  - Dysgeusia [None]
  - Back pain [None]
  - Feeling abnormal [None]
  - Dysuria [None]
  - Mood swings [None]
  - Physical assault [None]
  - Migraine [None]
  - Sensory disturbance [None]
  - Renal disorder [None]

NARRATIVE: CASE EVENT DATE: 20160501
